FAERS Safety Report 5109891-2 (Version None)
Quarter: 2006Q3

REPORT INFORMATION
  Report Type: 
  Country: None (occurrence: None)
  Receive Date: 20060921
  Receipt Date: 20060919
  Transmission Date: 20061208
  Serious: Yes (Disabling)
  Sender: FDA-Public Use
  Company Number: CA-SP-2006-02465

PATIENT
  Age: 62 Year
  Sex: Female

DRUGS (2)
  1. IMMUCYST [Suspect]
     Indication: BLADDER CANCER
     Route: 043
     Dates: end: 20060914
  2. IMMUCYST [Suspect]
     Route: 043
     Dates: end: 20060914

REACTIONS (6)
  - BACK PAIN [None]
  - IMMOBILE [None]
  - INCORRECT DOSE ADMINISTERED [None]
  - MOBILITY DECREASED [None]
  - PYREXIA [None]
  - RENAL PAIN [None]
